FAERS Safety Report 5644439-5 (Version None)
Quarter: 2008Q1

REPORT INFORMATION
  Report Type: 
  Country: None (occurrence: None)
  Receive Date: 20080229
  Receipt Date: 20070910
  Transmission Date: 20080703
  Serious: No
  Sender: FDA-Public Use
  Company Number: A0512246A

PATIENT
  Age: 58 Year
  Sex: Female

DRUGS (13)
  1. PAXIL CR [Suspect]
     Dosage: 37.5MG PER DAY
     Route: 048
     Dates: start: 20040101
  2. PAROXETINE HCL [Suspect]
     Dosage: 40MG PER DAY
     Route: 048
     Dates: start: 19980101, end: 20040101
  3. VALTREX [Suspect]
     Indication: GENITAL HERPES
     Dosage: 500MG THREE TIMES PER DAY
     Route: 048
     Dates: start: 20040525
  4. LAMICTAL [Concomitant]
  5. WELLBUTRIN XL [Concomitant]
  6. STRATTERA [Concomitant]
  7. PROVIGIL [Concomitant]
  8. ULTRAM [Concomitant]
  9. VALIUM [Concomitant]
  10. CALCIUM [Concomitant]
  11. VITAMINS [Concomitant]
  12. TRAMADOL HCL [Concomitant]
  13. CLONAZEPAM [Concomitant]

REACTIONS (2)
  - DRUG INEFFECTIVE [None]
  - NAUSEA [None]
